FAERS Safety Report 17057793 (Version 1)
Quarter: 2019Q4

REPORT INFORMATION
  Report Type: Spontaneous
  Country: US (occurrence: US)
  Receive Date: 20191022
  Receipt Date: 20191022
  Transmission Date: 20200122
  Serious: Yes (Hospitalization)
  Sender: FDA-Public Use
  Company Number: None

PATIENT
  Age: 49 Year
  Sex: Male
  Weight: 128.6 kg

DRUGS (1)
  1. DARATUMUMAB [Suspect]
     Active Substance: DARATUMUMAB
     Dates: end: 20191011

REACTIONS (8)
  - Chest pain [None]
  - Cough [None]
  - Blood pressure increased [None]
  - Heart rate increased [None]
  - Anxiety [None]
  - Pain [None]
  - Nausea [None]
  - Formication [None]

NARRATIVE: CASE EVENT DATE: 20191011
